FAERS Safety Report 20594705 (Version 1)
Quarter: 2022Q1

REPORT INFORMATION
  Report Type: Spontaneous
  Country: US (occurrence: None)
  Receive Date: 20220314
  Receipt Date: 20220314
  Transmission Date: 20220423
  Serious: No
  Sender: FDA-Public Use
  Company Number: None

PATIENT
  Sex: Female

DRUGS (1)
  1. HUMIRA [Suspect]
     Active Substance: ADALIMUMAB
     Indication: Juvenile idiopathic arthritis
     Dosage: 40MG EVERY OTHER WEEK?
     Route: 058
     Dates: start: 20200825

REACTIONS (8)
  - Asthma [None]
  - Dyspnoea [None]
  - Mental status changes [None]
  - Anxiety [None]
  - Depressed mood [None]
  - Impulsive behaviour [None]
  - Thinking abnormal [None]
  - Depression [None]
